FAERS Safety Report 15990790 (Version 3)
Quarter: 2019Q2

REPORT INFORMATION
  Report Type: Report from Study
  Country: JP (occurrence: JP)
  Receive Date: 20190221
  Receipt Date: 20190626
  Transmission Date: 20190711
  Serious: Yes (Death, Other)
  Sender: FDA-Public Use
  Company Number: JP-AMGEN-JPNNI2019025617

PATIENT
  Age: 8 Decade
  Sex: Female
  Weight: 43.5 kg

DRUGS (3)
  1. ACICLOVIR [ACICLOVIR SODIUM] [Concomitant]
     Indication: ANTIVIRAL PROPHYLAXIS
     Dosage: 200 MILLIGRAM
     Route: 065
     Dates: start: 20180111, end: 20180114
  2. CARFILZOMIB [Suspect]
     Active Substance: CARFILZOMIB
     Indication: PLASMA CELL MYELOMA
     Dosage: 20 MILLIGRAM/SQ. METER, QD (EVERYDAY)
     Route: 041
     Dates: start: 20180111, end: 20180112
  3. DEXAMETHASONE. [Concomitant]
     Active Substance: DEXAMETHASONE
     Indication: PLASMA CELL MYELOMA
     Dosage: 20 MG, EVERYDAY
     Route: 065
     Dates: start: 20180111, end: 20180112

REACTIONS (2)
  - Delirium [Not Recovered/Not Resolved]
  - Cardio-respiratory arrest [Fatal]

NARRATIVE: CASE EVENT DATE: 20180112
